FAERS Safety Report 21756136 (Version 1)
Quarter: 2022Q4

REPORT INFORMATION
  Report Type: Spontaneous
  Country: US (occurrence: US)
  Receive Date: 20221220
  Receipt Date: 20221220
  Transmission Date: 20230113
  Serious: No
  Sender: FDA-Public Use
  Company Number: US-BRISTOL-MYERS SQUIBB COMPANY-2022-149560

PATIENT
  Age: 73 Year
  Sex: Male
  Weight: 77.5 kg

DRUGS (1)
  1. ABECMA [Suspect]
     Active Substance: IDECABTAGENE VICLEUCEL
     Indication: Plasma cell myeloma
     Dates: start: 20220805, end: 20220807

REACTIONS (3)
  - Headache [Unknown]
  - Decreased appetite [Unknown]
  - Fatigue [Unknown]
